FAERS Safety Report 7476828-0 (Version None)
Quarter: 2011Q2

REPORT INFORMATION
  Report Type: 
  Country: None (occurrence: None)
  Receive Date: 20110512
  Receipt Date: 20110504
  Transmission Date: 20111010
  Serious: Yes (Hospitalization)
  Sender: FDA-Public Use
  Company Number: PHHY2011CA38786

PATIENT
  Sex: Male

DRUGS (4)
  1. PREDNISONE [Concomitant]
  2. VITAMIN D [Concomitant]
  3. CALCIUM [Concomitant]
  4. EXJADE [Suspect]
     Indication: MYELODYSPLASTIC SYNDROME
     Dosage: 1500 MG, QD
     Route: 048

REACTIONS (1)
  - CEREBROVASCULAR ACCIDENT [None]
